FAERS Safety Report 8093313-6 (Version None)
Quarter: 2012Q1

REPORT INFORMATION
  Report Type: 
  Country: None (occurrence: None)
  Receive Date: 20120128
  Receipt Date: 20111006
  Transmission Date: 20120608
  Serious: No
  Sender: FDA-Public Use
  Company Number: US-ABBOTT-11P-163-0847692-00

PATIENT
  Age: 37 Year
  Sex: Male

DRUGS (2)
  1. VITAMIN TAB [Concomitant]
     Indication: VITAMIN SUPPLEMENTATION
     Route: 048
  2. HUMIRA [Suspect]
     Indication: PSORIASIS
     Dates: start: 20080101

REACTIONS (5)
  - HEPATIC STEATOSIS [None]
  - PSORIASIS [None]
  - HYPERTENSION [None]
  - HEPATIC ENZYME INCREASED [None]
  - BLOOD CHOLESTEROL INCREASED [None]
